FAERS Safety Report 21192105 (Version 1)
Quarter: 2022Q3

REPORT INFORMATION
  Report Type: Spontaneous
  Country: US (occurrence: US)
  Receive Date: 20220809
  Receipt Date: 20220809
  Transmission Date: 20221027
  Serious: No
  Sender: FDA-Public Use
  Company Number: US-GLAXOSMITHKLINE-USCH2022027680

PATIENT

DRUGS (1)
  1. GLYCERIN\SORBITOL [Suspect]
     Active Substance: GLYCERIN\SORBITOL
     Indication: Tooth discolouration
     Dosage: UNK

REACTIONS (6)
  - Dysgeusia [Unknown]
  - Nausea [Unknown]
  - Hyperaesthesia teeth [Unknown]
  - Disease recurrence [Unknown]
  - Drug effect less than expected [Unknown]
  - Product complaint [Unknown]
